FAERS Safety Report 8923782 (Version 1)
Quarter: 2012Q4

REPORT INFORMATION
  Report Type: 
  Country: US (occurrence: US)
  Receive Date: 20121126
  Receipt Date: 20121126
  Transmission Date: 20130627
  Serious: Yes (Other)
  Sender: FDA-Public Use
  Company Number: US-INCYTE CORPORATION-2012IN002373

PATIENT

DRUGS (1)
  1. JAKAFI [Suspect]
     Dosage: 10 mg, bid
     Route: 048

REACTIONS (1)
  - Pancytopenia [Unknown]
